FAERS Safety Report 4946735-3 (Version None)
Quarter: 2006Q1

REPORT INFORMATION
  Report Type: 
  Country: None (occurrence: None)
  Receive Date: 20060201
  Receipt Date: 20051217
  Transmission Date: 20060701
  Serious: No
  Sender: FDA-Public Use
  Company Number: 2005PV006006

PATIENT
  Age: 67 Year
  Sex: Male
  Weight: 88.4514 kg

DRUGS (3)
  1. BYETTA [Suspect]
     Indication: DIABETES MELLITUS NON-INSULIN-DEPENDENT
     Dosage: 10 MCG BID SC ; 5 MCG BID SC
     Route: 058
     Dates: start: 20051115, end: 20051215
  2. BYETTA [Suspect]
     Indication: DIABETES MELLITUS NON-INSULIN-DEPENDENT
     Dosage: 10 MCG BID SC ; 5 MCG BID SC
     Route: 058
     Dates: start: 20051216
  3. GLUCOVANCE [Concomitant]

REACTIONS (8)
  - ABDOMINAL DISTENSION [None]
  - DECREASED APPETITE [None]
  - DYSPEPSIA [None]
  - HEADACHE [None]
  - NAUSEA [None]
  - SOMNOLENCE [None]
  - STOMACH DISCOMFORT [None]
  - WEIGHT DECREASED [None]
